FAERS Safety Report 15698518 (Version 1)
Quarter: 2018Q4

REPORT INFORMATION
  Report Type: Spontaneous
  Country: US (occurrence: US)
  Receive Date: 20181126
  Receipt Date: 20181126
  Transmission Date: 20190205
  Serious: Yes (Disabling, Other)
  Sender: FDA-Public Use
  Company Number: None

PATIENT
  Age: 40 Year
  Sex: Female
  Weight: 96.75 kg

DRUGS (3)
  1. PRAVASTATIN. [Concomitant]
     Active Substance: PRAVASTATIN
  2. HCTZ [Concomitant]
     Active Substance: HYDROCHLOROTHIAZIDE
  3. SPIRONOLACTONE 25MG [Suspect]
     Active Substance: SPIRONOLACTONE
     Indication: PRODUCT USED FOR UNKNOWN INDICATION
     Dosage: ?          QUANTITY:1 TABLET(S);?
     Route: 048
     Dates: start: 20180901, end: 20181001

REACTIONS (10)
  - Muscle spasms [None]
  - Peripheral swelling [None]
  - Chest pain [None]
  - Somnolence [None]
  - Rash [None]
  - Weight decreased [None]
  - Impaired work ability [None]
  - Nausea [None]
  - Headache [None]
  - Diarrhoea [None]

NARRATIVE: CASE EVENT DATE: 20180901
